FAERS Safety Report 15792805 (Version 2)
Quarter: 2019Q1

REPORT INFORMATION
  Report Type: Spontaneous
  Country: US (occurrence: US)
  Receive Date: 20190107
  Receipt Date: 20190304
  Transmission Date: 20190417
  Serious: Yes (Hospitalization)
  Sender: FDA-Public Use
  Company Number: US-JNJFOC-20181233331

PATIENT
  Age: 67 Year
  Sex: Male

DRUGS (7)
  1. XARELTO [Suspect]
     Active Substance: RIVAROXABAN
     Indication: DEEP VEIN THROMBOSIS
     Dosage: 15 MG, 20 MG, AND 10 MG
     Route: 048
     Dates: start: 20160217, end: 20161231
  2. ASPIRIN. [Suspect]
     Active Substance: ASPIRIN
     Indication: PRODUCT USED FOR UNKNOWN INDICATION
     Route: 065
  3. XARELTO [Suspect]
     Active Substance: RIVAROXABAN
     Indication: THROMBOSIS
     Dosage: 15 MG, 20 MG, AND 10 MG
     Route: 048
     Dates: start: 20150101, end: 2016
  4. XARELTO [Suspect]
     Active Substance: RIVAROXABAN
     Indication: THROMBOSIS
     Dosage: 15 MG, 20 MG, AND 10 MG
     Route: 048
     Dates: start: 20160217, end: 20161231
  5. XARELTO [Suspect]
     Active Substance: RIVAROXABAN
     Indication: DEEP VEIN THROMBOSIS
     Dosage: 15 MG, 20 MG, AND 10 MG
     Route: 048
     Dates: end: 20171214
  6. XARELTO [Suspect]
     Active Substance: RIVAROXABAN
     Indication: DEEP VEIN THROMBOSIS
     Dosage: 15 MG, 20 MG, AND 10 MG
     Route: 048
     Dates: start: 20150101, end: 2016
  7. XARELTO [Suspect]
     Active Substance: RIVAROXABAN
     Indication: THROMBOSIS
     Dosage: 15 MG, 20 MG, AND 10 MG
     Route: 048
     Dates: end: 20171214

REACTIONS (2)
  - Gastritis haemorrhagic [Recovering/Resolving]
  - Oesophagitis haemorrhagic [Recovering/Resolving]

NARRATIVE: CASE EVENT DATE: 20160404
